FAERS Safety Report 6620179-0 (Version None)
Quarter: 2010Q1

REPORT INFORMATION
  Report Type: 
  Country: None (occurrence: None)
  Receive Date: 20100308
  Receipt Date: 20100308
  Transmission Date: 20100710
  Serious: No
  Sender: FDA-Public Use
  Company Number: None

PATIENT
  Age: 76 Year
  Sex: Female
  Weight: 56.6996 kg

DRUGS (1)
  1. LYRICA [Suspect]
     Indication: FIBROMYALGIA
     Dosage: 150MG BID PO
     Route: 048

REACTIONS (4)
  - CARDIAC FLUTTER [None]
  - FEAR [None]
  - MALAISE [None]
  - OEDEMA PERIPHERAL [None]
